FAERS Safety Report 8555573-4 (Version None)
Quarter: 2012Q3

REPORT INFORMATION
  Report Type: 
  Country: None (occurrence: None)
  Receive Date: 20120731
  Receipt Date: 20120314
  Transmission Date: 20120928
  Serious: No
  Sender: FDA-Public Use
  Company Number: US-ASTRAZENECA-2010SE50611

PATIENT
  Age: 37 Year
  Sex: Female
  Weight: 47.6 kg

DRUGS (11)
  1. SEROQUEL XR [Suspect]
     Dosage: HALF TABLETS AT NIGHTS
     Route: 048
  2. SEROQUEL XR [Suspect]
     Route: 048
  3. SEROQUEL XR [Suspect]
     Route: 048
  4. SEROQUEL XR [Suspect]
     Indication: DEPRESSION
     Dosage: UNKNOWN DOSE AT NIGHTS
     Route: 048
     Dates: start: 20090101
  5. SEROQUEL XR [Suspect]
     Indication: SEROTONIN SYNDROME
     Dosage: UNKNOWN DOSE AT NIGHTS
     Route: 048
     Dates: start: 20090101
  6. SEROQUEL XR [Suspect]
     Route: 048
  7. SEROQUEL XR [Suspect]
     Dosage: HALF TABLETS AT NIGHTS
     Route: 048
  8. SEROQUEL XR [Suspect]
     Dosage: HALF TABLETS AT NIGHTS
     Route: 048
  9. LAMICTAL [Concomitant]
  10. SEROQUEL XR [Suspect]
     Indication: CONVULSION
     Dosage: UNKNOWN DOSE AT NIGHTS
     Route: 048
     Dates: start: 20090101
  11. CLONAZEPAM [Concomitant]

REACTIONS (7)
  - INTENTIONAL DRUG MISUSE [None]
  - FEELING JITTERY [None]
  - DRUG WITHDRAWAL SYNDROME [None]
  - DRUG DOSE OMISSION [None]
  - NERVOUSNESS [None]
  - HEADACHE [None]
  - OFF LABEL USE [None]
